FAERS Safety Report 10347623 (Version 1)
Quarter: 2014Q3

REPORT INFORMATION
  Report Type: Spontaneous
  Country: FR (occurrence: FR)
  Receive Date: 20140729
  Receipt Date: 20140729
  Transmission Date: 20150326
  Serious: Yes (Death)
  Sender: FDA-Public Use
  Company Number: FR-PFIZER INC-2014208111

PATIENT
  Sex: Male
  Weight: 82 kg

DRUGS (2)
  1. SUNITINIB MALATE [Suspect]
     Active Substance: SUNITINIB MALATE
     Dosage: 50 MG, CYCLIC 4 WEEKS ON 2 WEEKS OFF
     Dates: start: 20101227, end: 20110616
  2. SUNITINIB MALATE [Suspect]
     Active Substance: SUNITINIB MALATE
     Indication: RENAL CANCER METASTATIC
     Dosage: 50 MG, CYCLIC 4 WEEKS ON 2 WEEKS OFF
     Dates: start: 20070113, end: 20090312

REACTIONS (3)
  - Death [Fatal]
  - Disease progression [Unknown]
  - Renal cancer metastatic [Unknown]

NARRATIVE: CASE EVENT DATE: 20120504
